FAERS Safety Report 22287768 (Version 1)
Quarter: 2023Q2

REPORT INFORMATION
  Report Type: Spontaneous
  Country: JP (occurrence: JP)
  Receive Date: 20230505
  Receipt Date: 20230505
  Transmission Date: 20230721
  Serious: Yes (Other)
  Sender: FDA-Public Use
  Company Number: None

PATIENT

DRUGS (2)
  1. BENLYSTA [Suspect]
     Active Substance: BELIMUMAB
     Indication: Systemic lupus erythematosus
     Dosage: 200 MG
     Route: 058
     Dates: start: 20221017, end: 20221025
  2. SOLU-MEDROL [Suspect]
     Active Substance: METHYLPREDNISOLONE SODIUM SUCCINATE
     Indication: Neuropsychiatric lupus
     Dosage: 1000 MG
     Dates: start: 20221102, end: 20221104

REACTIONS (8)
  - Depressed mood [Recovered/Resolved]
  - Abulia [Recovered/Resolved]
  - Mood altered [Recovered/Resolved]
  - Neuropsychiatric lupus [Recovered/Resolved]
  - Substance-induced psychotic disorder [Recovered/Resolved]
  - Dementia [Unknown]
  - Hallucination, auditory [Unknown]
  - Hallucination [Unknown]

NARRATIVE: CASE EVENT DATE: 20221025
